FAERS Safety Report 5641153-7 (Version None)
Quarter: 2008Q1

REPORT INFORMATION
  Report Type: 
  Country: None (occurrence: None)
  Receive Date: 20080227
  Receipt Date: 20070208
  Transmission Date: 20080703
  Serious: No
  Sender: FDA-Public Use
  Company Number: A0638712A

PATIENT
  Sex: Female

DRUGS (6)
  1. NICORETTE (MINT) [Suspect]
  2. NICORETTE [Suspect]
  3. NICORETTE [Suspect]
  4. ATENOLOL [Concomitant]
  5. HYDROCHLOROTHIAZIDE [Concomitant]
  6. CHOLESTEROL REDUCING AGENT [Concomitant]

REACTIONS (1)
  - INTENTIONAL DRUG MISUSE [None]
